FAERS Safety Report 17179496 (Version 1)
Quarter: 2019Q4

REPORT INFORMATION
  Report Type: Spontaneous
  Country: GB (occurrence: GB)
  Receive Date: 20191219
  Receipt Date: 20191219
  Transmission Date: 20200122
  Serious: Yes (Other)
  Sender: FDA-Public Use
  Company Number: GB-SA-2019SA346966

PATIENT
  Age: 25 Year
  Sex: Female
  Weight: 82.6 kg

DRUGS (4)
  1. FOLIC ACID. [Concomitant]
     Active Substance: FOLIC ACID
  2. SALBUTAMOL [Concomitant]
     Active Substance: ALBUTEROL
  3. PROGESTOGEN [Concomitant]
     Indication: CONTRACEPTION
  4. TERIFLUNOMIDE. [Suspect]
     Active Substance: TERIFLUNOMIDE
     Indication: MULTIPLE SCLEROSIS
     Dosage: 14 MG, QD
     Route: 048
     Dates: start: 20191118

REACTIONS (3)
  - Dysuria [Unknown]
  - Cough [Unknown]
  - Pyrexia [Unknown]
